FAERS Safety Report 4725913-2 (Version None)
Quarter: 2005Q3

REPORT INFORMATION
  Report Type: 
  Country: None (occurrence: None)
  Receive Date: 20050722
  Receipt Date: 20050722
  Transmission Date: 20060218
  Serious: Yes (Life-Threatening, Hospitalization)
  Sender: FDA-Public Use
  Company Number: None

PATIENT
  Age: 69 Year
  Sex: Male
  Weight: 73.0291 kg

DRUGS (7)
  1. WARFARIN [Suspect]
     Indication: ATRIAL FIBRILLATION
     Dosage: 5 MG PO DAILY
     Route: 048
  2. COREG [Concomitant]
  3. AMIODARONE [Concomitant]
  4. LISINOPRIL [Concomitant]
  5. LASIX [Concomitant]
  6. POTASSIUM CHLORIDE [Concomitant]
  7. FOLIC ACID [Concomitant]

REACTIONS (2)
  - SHOCK [None]
  - UPPER GASTROINTESTINAL HAEMORRHAGE [None]
